FAERS Safety Report 23152903 (Version 1)
Quarter: 2023Q4

REPORT INFORMATION
  Report Type: Spontaneous
  Country: US (occurrence: US)
  Receive Date: 20231107
  Receipt Date: 20231107
  Transmission Date: 20240110
  Serious: No
  Sender: FDA-Public Use
  Company Number: US-ABBVIE-5477897

PATIENT
  Sex: Female
  Weight: 50 kg

DRUGS (3)
  1. RESTASIS [Suspect]
     Active Substance: CYCLOSPORINE
     Indication: Dry eye
     Dosage: FREQUENCY WEEK OR TWO
     Route: 065
     Dates: start: 2020, end: 2020
  2. TACROLIMUS [Concomitant]
     Active Substance: TACROLIMUS
     Indication: Glaucoma
  3. DORZOLAMIDE [Concomitant]
     Active Substance: DORZOLAMIDE
     Indication: Glaucoma

REACTIONS (5)
  - Head discomfort [Recovered/Resolved]
  - Lacrimation increased [Recovered/Resolved]
  - Sinus disorder [Recovered/Resolved]
  - Nasal congestion [Recovered/Resolved]
  - Sensory disturbance [Recovered/Resolved]

NARRATIVE: CASE EVENT DATE: 20200101
